FAERS Safety Report 20347691 (Version 1)
Quarter: 2022Q1

REPORT INFORMATION
  Report Type: Spontaneous
  Country: US (occurrence: US)
  Receive Date: 20220118
  Receipt Date: 20220118
  Transmission Date: 20220424
  Serious: No
  Sender: FDA-Public Use
  Company Number: US-FRESENIUS KABI-FK202200478

PATIENT
  Sex: Female

DRUGS (1)
  1. FULVESTRANT [Suspect]
     Active Substance: FULVESTRANT
     Indication: Neoplasm malignant
     Dosage: GIVEN AS 250 MG X TWO INJECTIONS
     Route: 030
     Dates: start: 20220111, end: 20220111

REACTIONS (3)
  - Skin indentation [Recovered/Resolved]
  - Pain in extremity [Recovered/Resolved]
  - Erythema [Recovered/Resolved]

NARRATIVE: CASE EVENT DATE: 20220111
